FAERS Safety Report 11340151 (Version 1)
Quarter: 2015Q3

REPORT INFORMATION
  Report Type: Spontaneous
  Country: GB (occurrence: GB)
  Receive Date: 20150805
  Receipt Date: 20150805
  Transmission Date: 20151125
  Serious: Yes (Disabling)
  Sender: FDA-Public Use
  Company Number: GB-BAYER-2015-392125

PATIENT
  Sex: Female

DRUGS (1)
  1. MIRENA [Suspect]
     Active Substance: LEVONORGESTREL
     Dosage: 20 MCG/24HR, CONT
     Route: 015

REACTIONS (8)
  - Menstrual disorder [Unknown]
  - Fatigue [Unknown]
  - Drug hypersensitivity [Unknown]
  - Hypersomnia [Unknown]
  - Pelvic pain [Unknown]
  - Alopecia [Unknown]
  - Decreased appetite [Unknown]
  - Rash [Unknown]
